FAERS Safety Report 4679164-0 (Version None)
Quarter: 2005Q2

REPORT INFORMATION
  Report Type: 
  Country: None (occurrence: None)
  Receive Date: 20050526
  Receipt Date: 20050314
  Transmission Date: 20051028
  Serious: Yes (Hospitalization)
  Sender: FDA-Public Use
  Company Number: WAES 0503USA02368

PATIENT
  Age: 75 Year
  Sex: Male

DRUGS (5)
  1. VYTORIN [Suspect]
     Indication: HYPERCHOLESTEROLAEMIA
     Dosage: 10-80 MG/DAILY/PO
     Route: 048
     Dates: start: 20050310
  2. COUMADIN [Concomitant]
  3. KLOR-CON [Concomitant]
  4. LASIX [Concomitant]
  5. VERAPAMIL [Concomitant]

REACTIONS (1)
  - ADVERSE EVENT [None]
